FAERS Safety Report 17823674 (Version 2)
Quarter: 2020Q2

REPORT INFORMATION
  Report Type: Spontaneous
  Country: US (occurrence: US)
  Receive Date: 20200526
  Receipt Date: 20200603
  Transmission Date: 20200714
  Serious: No
  Sender: FDA-Public Use
  Company Number: US-PFIZER INC-2020205341

PATIENT
  Age: 53 Year
  Sex: Female

DRUGS (1)
  1. LORBRENA [Suspect]
     Active Substance: LORLATINIB
     Dosage: UNK

REACTIONS (4)
  - Neoplasm progression [Unknown]
  - Malaise [Unknown]
  - Feeling abnormal [Unknown]
  - Drug intolerance [Unknown]
